FAERS Safety Report 7576830-4 (Version None)
Quarter: 2011Q2

REPORT INFORMATION
  Report Type: 
  Country: None (occurrence: None)
  Receive Date: 20110628
  Receipt Date: 20110614
  Transmission Date: 20111010
  Serious: Yes (Other)
  Sender: FDA-Public Use
  Company Number: US-JNJFOC-20101203823

PATIENT
  Sex: Female
  Weight: 72.58 kg

DRUGS (12)
  1. REMICADE [Suspect]
     Route: 042
     Dates: start: 20100810
  2. REMICADE [Suspect]
     Route: 042
     Dates: start: 20110101
  3. SYNTHROID [Concomitant]
     Indication: HYPOTHYROIDISM
     Route: 048
  4. METHOTREXATE [Concomitant]
     Indication: RHEUMATOID ARTHRITIS
     Route: 048
  5. FOLIC ACID [Concomitant]
     Indication: FOLATE DEFICIENCY
     Route: 048
  6. LOVAZA [Concomitant]
     Indication: RHEUMATOID ARTHRITIS
     Route: 048
  7. REMICADE [Suspect]
     Route: 042
     Dates: start: 20100420
  8. REMICADE [Suspect]
     Route: 042
     Dates: start: 20100615
  9. REMICADE [Suspect]
     Route: 042
     Dates: start: 20100309
  10. REMICADE [Suspect]
     Indication: RHEUMATOID ARTHRITIS
     Route: 042
     Dates: start: 20100323
  11. REMICADE [Suspect]
     Route: 042
     Dates: start: 20101005
  12. REMICADE [Suspect]
     Route: 042
     Dates: start: 20100201

REACTIONS (11)
  - NASAL CONGESTION [None]
  - VISION BLURRED [None]
  - VITILIGO [None]
  - HYPERSENSITIVITY [None]
  - DEAFNESS [None]
  - TINNITUS [None]
  - OROPHARYNGEAL PAIN [None]
  - RESPIRATORY TRACT CONGESTION [None]
  - COUGH [None]
  - RHINITIS [None]
  - SINUS CONGESTION [None]
